FAERS Safety Report 20750896 (Version 1)
Quarter: 2022Q2

REPORT INFORMATION
  Report Type: Spontaneous
  Country: CA (occurrence: CA)
  Receive Date: 20220426
  Receipt Date: 20220426
  Transmission Date: 20220720
  Serious: Yes (Hospitalization)
  Sender: FDA-Public Use
  Company Number: CA-STRIDES ARCOLAB LIMITED-2022SP004455

PATIENT
  Age: 9 Year
  Sex: Male

DRUGS (1)
  1. DEXAMETHASONE [Suspect]
     Active Substance: DEXAMETHASONE
     Indication: Nausea
     Dosage: UNK
     Route: 065

REACTIONS (6)
  - Low turnover osteopathy [Unknown]
  - Osteoporosis [Unknown]
  - Compression fracture [Unknown]
  - Spinal fracture [Unknown]
  - Pathological fracture [Unknown]
  - Off label use [Unknown]
